FAERS Safety Report 8853223 (Version 1)
Quarter: 2012Q4

REPORT INFORMATION
  Report Type: 
  Country: US (occurrence: US)
  Receive Date: 20121023
  Receipt Date: 20121023
  Transmission Date: 20130627
  Serious: Yes (Hospitalization, Other)
  Sender: FDA-Public Use
  Company Number: US-AMGEN-USASP2012065930

PATIENT
  Sex: Female

DRUGS (14)
  1. ARANESP [Suspect]
     Indication: ANAEMIA
     Dosage: 100 mug, q2wk
     Dates: start: 2004
  2. CARVEDILOL [Concomitant]
  3. DIGOXIN [Concomitant]
  4. HYDRALAZINE [Concomitant]
  5. ISOSORBIDE MONONITRATE [Concomitant]
  6. PANTOPRAZOLE [Concomitant]
  7. FOLIC ACID [Concomitant]
  8. CRESTOR [Concomitant]
  9. FENOFIBRIC ACID [Concomitant]
  10. VITAMIN C                          /00008001/ [Concomitant]
  11. ASPIRIN [Concomitant]
  12. VENTOLIN                           /00139501/ [Concomitant]
  13. SPIRIVA [Concomitant]
  14. ADVAIR [Concomitant]

REACTIONS (3)
  - Dyspnoea [Unknown]
  - Haemoglobin abnormal [Unknown]
  - Renal failure [Unknown]
